FAERS Safety Report 4662598-8 (Version None)
Quarter: 2005Q2

REPORT INFORMATION
  Report Type: 
  Country: None (occurrence: None)
  Receive Date: 20050516
  Receipt Date: 20050330
  Transmission Date: 20051028
  Serious: Yes (Death, Hospitalization, Disabling, Other)
  Sender: FDA-Public Use
  Company Number: 2005CG00676

PATIENT
  Age: 23409 Day
  Sex: Male
  Weight: 56 kg

DRUGS (3)
  1. IRESSA [Suspect]
     Indication: NON-SMALL CELL LUNG CANCER
     Route: 048
     Dates: start: 20050228, end: 20050331
  2. RADIOTHERAPY [Suspect]
     Indication: NON-SMALL CELL LUNG CANCER
     Dosage: 2 GRAYS PER DAY 5 DAYS OVER 7
     Dates: start: 20050308, end: 20050407
  3. INNOHEP [Concomitant]
     Indication: PHLEBOTHROMBOSIS
     Route: 058

REACTIONS (3)
  - ANOREXIA [None]
  - GENERAL PHYSICAL HEALTH DETERIORATION [None]
  - PNEUMONIA ASPIRATION [None]
